FAERS Safety Report 7199297-7 (Version None)
Quarter: 2010Q4

REPORT INFORMATION
  Report Type: 
  Country: None (occurrence: None)
  Receive Date: 20101228
  Receipt Date: 20101122
  Transmission Date: 20110411
  Serious: Yes (Death, Hospitalization)
  Sender: FDA-Public Use
  Company Number: US-BAYER-201041954NA

PATIENT
  Age: 66 Year
  Sex: Female
  Weight: 47.4 kg

DRUGS (2)
  1. SORAFENIB (RAF KINASE INHIBITOR) [Suspect]
     Indication: COLORECTAL CANCER
     Dosage: THREE TIMES A WEEK
     Route: 048
     Dates: start: 20090818, end: 20101019
  2. BEVACIZUMAB [Suspect]
     Indication: COLORECTAL CANCER
     Dosage: DAY ONE OF CYCLE
     Route: 042
     Dates: start: 20090818, end: 20101102

REACTIONS (4)
  - CONVULSION [None]
  - HYPERTENSION [None]
  - PNEUMONIA [None]
  - REVERSIBLE POSTERIOR LEUKOENCEPHALOPATHY SYNDROME [None]
